FAERS Safety Report 24049811 (Version 1)
Quarter: 2024Q3

REPORT INFORMATION
  Report Type: Spontaneous
  Country: US (occurrence: US)
  Receive Date: 20240704
  Receipt Date: 20240704
  Transmission Date: 20241017
  Serious: Yes (Other)
  Sender: SANDOZ
  Company Number: US-002147023-NVSC2023US116532

PATIENT
  Age: 4 Year
  Sex: Female

DRUGS (5)
  1. AMOXICILLIN\CLAVULANATE POTASSIUM [Suspect]
     Active Substance: AMOXICILLIN\CLAVULANATE POTASSIUM
     Indication: Granulomatous dermatitis
     Dosage: UNK
     Route: 048
  2. AZITHROMYCIN [Suspect]
     Active Substance: AZITHROMYCIN
     Indication: Granulomatous dermatitis
     Dosage: UNK
     Route: 048
  3. CLINDAMYCIN [Suspect]
     Active Substance: CLINDAMYCIN
     Indication: Granulomatous dermatitis
     Route: 048
  4. ERYTHROMYCIN [Suspect]
     Active Substance: ERYTHROMYCIN
     Indication: Granulomatous dermatitis
     Dosage: UNK
     Route: 061
  5. PREDNISONE [Suspect]
     Active Substance: PREDNISONE
     Indication: Granulomatous dermatitis
     Dosage: 1 MG/KG, QD
     Route: 048

REACTIONS (6)
  - Granulomatous dermatitis [Recovering/Resolving]
  - Disease progression [Recovering/Resolving]
  - Visual impairment [Unknown]
  - Conjunctival defect [Unknown]
  - Drug ineffective [Unknown]
  - Product use in unapproved indication [Unknown]
